FAERS Safety Report 6766094-3 (Version None)
Quarter: 2010Q2

REPORT INFORMATION
  Report Type: 
  Country: None (occurrence: None)
  Receive Date: 20100611
  Receipt Date: 20100531
  Transmission Date: 20101027
  Serious: Yes (Hospitalization)
  Sender: FDA-Public Use
  Company Number: PHHY2010CH35096

PATIENT
  Age: 71 Year
  Sex: Female

DRUGS (1)
  1. ACLASTA [Suspect]
     Indication: OSTEOPOROSIS
     Dosage: 5 GMG
     Route: 042
     Dates: start: 20100426

REACTIONS (6)
  - ABDOMINAL PAIN [None]
  - FEELING HOT [None]
  - HYPERTENSION [None]
  - MALAISE [None]
  - PALPITATIONS [None]
  - TREMOR [None]
